FAERS Safety Report 14728399 (Version 1)
Quarter: 2018Q2

REPORT INFORMATION
  Report Type: Spontaneous
  Country: US (occurrence: US)
  Receive Date: 20180402
  Receipt Date: 20180402
  Transmission Date: 20180711
  Serious: Yes (Other)
  Sender: FDA-Public Use
  Company Number: None

PATIENT
  Age: 33 Year
  Sex: Female
  Weight: 51.26 kg

DRUGS (1)
  1. NEXPLANON [Suspect]
     Active Substance: ETONOGESTREL

REACTIONS (7)
  - Dizziness [None]
  - Urticaria [None]
  - Menorrhagia [None]
  - Depression [None]
  - Pruritus [None]
  - Negative thoughts [None]
  - Headache [None]

NARRATIVE: CASE EVENT DATE: 20180301
